FAERS Safety Report 14481395 (Version 2)
Quarter: 2018Q1

REPORT INFORMATION
  Report Type: Spontaneous
  Country: US (occurrence: US)
  Receive Date: 20180202
  Receipt Date: 20180212
  Transmission Date: 20180509
  Serious: Yes (Hospitalization, Other)
  Sender: FDA-Public Use
  Company Number: US-SUNOVION-2018SUN000313

PATIENT
  Age: 20 Year
  Sex: Female
  Weight: 49.89 kg

DRUGS (4)
  1. LATUDA [Suspect]
     Active Substance: LURASIDONE HYDROCHLORIDE
     Dosage: 20 MG, QD
     Route: 048
     Dates: start: 20180120
  2. KLONOPIN [Concomitant]
     Active Substance: CLONAZEPAM
     Indication: ANXIETY
  3. EFFEXOR [Concomitant]
     Active Substance: VENLAFAXINE HYDROCHLORIDE
     Dosage: 187.5 MG, UNK
  4. LATUDA [Suspect]
     Active Substance: LURASIDONE HYDROCHLORIDE
     Indication: BIPOLAR DISORDER
     Dosage: 30 MG, QD
     Route: 048
     Dates: start: 2017, end: 20180119

REACTIONS (10)
  - Sensory disturbance [Unknown]
  - Discomfort [Unknown]
  - Dyskinesia [Unknown]
  - Muscle spasms [Unknown]
  - Anxiety [Unknown]
  - Seizure [Recovered/Resolved]
  - Muscle twitching [Unknown]
  - Feeling abnormal [Unknown]
  - Drug ineffective [Unknown]
  - Bipolar disorder [Unknown]

NARRATIVE: CASE EVENT DATE: 20180124
